FAERS Safety Report 16840819 (Version 1)
Quarter: 2019Q3

REPORT INFORMATION
  Report Type: Spontaneous
  Country: US (occurrence: US)
  Receive Date: 20190923
  Receipt Date: 20190923
  Transmission Date: 20191005
  Serious: No
  Sender: FDA-Public Use
  Company Number: US-009507513-1909USA008355

PATIENT
  Sex: Female

DRUGS (5)
  1. ESTRADIOL. [Concomitant]
     Active Substance: ESTRADIOL
     Dosage: UNK
  2. CLOMIPHENE CITRATE. [Concomitant]
     Active Substance: CLOMIPHENE CITRATE
     Dosage: UNK
  3. PREGNYL [Suspect]
     Active Substance: CHORIOGONADOTROPIN ALFA
     Indication: INFERTILITY FEMALE
     Dosage: STRENGTH: 10000 UNIT, DOSE: INJECT INTRAMUSCULARLY, FREQUENCY: AS DIRECTED
     Route: 030
     Dates: start: 20190812
  4. LEUPROLIDE [Concomitant]
     Active Substance: LEUPROLIDE
     Dosage: UNK
  5. PROGESTERONE. [Concomitant]
     Active Substance: PROGESTERONE
     Dosage: UNK

REACTIONS (2)
  - Discomfort [Unknown]
  - Pain [Unknown]
